FAERS Safety Report 5824147-8 (Version None)
Quarter: 2008Q3

REPORT INFORMATION
  Report Type: 
  Country: None (occurrence: None)
  Receive Date: 20080722
  Receipt Date: 20080704
  Transmission Date: 20090109
  Serious: Yes (Other)
  Sender: FDA-Public Use
  Company Number: 8034611

PATIENT
  Age: 67 Year
  Sex: Female
  Weight: 60 kg

DRUGS (3)
  1. KEPPRA [Suspect]
     Indication: EPILEPSY
     Dosage: 2500 MG 2/D PO
     Route: 048
     Dates: start: 20080314
  2. KEPPRA [Suspect]
     Indication: EPILEPSY
     Dosage: /D PO
     Route: 048
  3. LYRICA [Concomitant]

REACTIONS (8)
  - APATHY [None]
  - BRADYPHRENIA [None]
  - COGNITIVE DISORDER [None]
  - DISTURBANCE IN ATTENTION [None]
  - DRUG TOXICITY [None]
  - FATIGUE [None]
  - GAIT DISTURBANCE [None]
  - SOMNOLENCE [None]
